FAERS Safety Report 5671263-X (Version None)
Quarter: 2008Q1

REPORT INFORMATION
  Report Type: 
  Country: None (occurrence: None)
  Receive Date: 20080318
  Receipt Date: 20080311
  Transmission Date: 20080703
  Serious: No
  Sender: FDA-Public Use
  Company Number: US-BAXTER-2008BH002236

PATIENT
  Sex: Female

DRUGS (2)
  1. HEPARIN SODIUM [Suspect]
     Indication: DRUG USE FOR UNKNOWN INDICATION
     Dosage: DOSE UNIT:UNKNOWN
     Route: 065
     Dates: start: 20070601
  2. HEPARIN SODIUM [Suspect]
     Dosage: DOSE UNIT:UNKNOWN
     Route: 065
     Dates: start: 20070601

REACTIONS (6)
  - DRUG EXPOSURE DURING PREGNANCY [None]
  - EPISTAXIS [None]
  - INJECTION SITE RASH [None]
  - NAUSEA [None]
  - PALLOR [None]
  - PHARYNGOLARYNGEAL PAIN [None]
